FAERS Safety Report 10597103 (Version 3)
Quarter: 2025Q4

REPORT INFORMATION
  Report Type: Report from Study
  Country: EU (occurrence: EU)
  Receive Date: 20141121
  Receipt Date: 20251018
  Transmission Date: 20260118
  Serious: Yes (Other)
  Sender: ACCORD
  Company Number: EU-ACCORD-027132

PATIENT
  Age: 56 Year
  Sex: Female

DRUGS (4)
  1. MYCOPHENOLATE MOFETIL [Suspect]
     Active Substance: MYCOPHENOLATE MOFETIL
     Indication: Transplant
  2. TACROLIMUS [Suspect]
     Active Substance: TACROLIMUS
     Indication: Transplant
  3. BASILIXIMAB [Suspect]
     Active Substance: BASILIXIMAB
     Indication: Transplant
  4. PREDNISONE [Suspect]
     Active Substance: PREDNISONE
     Indication: Transplant

REACTIONS (8)
  - Chronic kidney disease [Unknown]
  - Hyperuricaemia [Unknown]
  - Hypertension [Unknown]
  - Left ventricular hypertrophy [Unknown]
  - Off label use [Unknown]
  - Diabetes mellitus [Not Recovered/Not Resolved]
  - Dyslipidaemia [Unknown]
  - Diastolic dysfunction [Unknown]
